FAERS Safety Report 16768096 (Version 2)
Quarter: 2020Q2

REPORT INFORMATION
  Report Type: Spontaneous
  Country: BR (occurrence: BR)
  Receive Date: 20190903
  Receipt Date: 20200624
  Transmission Date: 20200713
  Serious: Yes (Death, Hospitalization, Other)
  Sender: FDA-Public Use
  Company Number: BR-JNJFOC-20190825219

PATIENT
  Age: 21 Year
  Sex: Female

DRUGS (1)
  1. XARELTO [Suspect]
     Active Substance: RIVAROXABAN
     Indication: EMBOLISM VENOUS
     Dosage: UNK
     Route: 048
     Dates: start: 2018

REACTIONS (7)
  - Pain [Unknown]
  - Blister [Unknown]
  - Peripheral ischaemia [Unknown]
  - Haemorrhage subcutaneous [Unknown]
  - Haemorrhage [Unknown]
  - Subcutaneous haematoma [Unknown]
  - Ischaemia [Fatal]

NARRATIVE: CASE EVENT DATE: 201908
